FAERS Safety Report 6587771-3 (Version None)
Quarter: 2010Q1

REPORT INFORMATION
  Report Type: 
  Country: None (occurrence: None)
  Receive Date: 20100218
  Receipt Date: 20100209
  Transmission Date: 20100710
  Serious: Yes (Hospitalization)
  Sender: FDA-Public Use
  Company Number: IT-ASTRAZENECA-2010SE05991

PATIENT
  Age: 25754 Day
  Sex: Male

DRUGS (10)
  1. SEROQUEL [Suspect]
     Indication: BIPOLAR I DISORDER
     Route: 048
     Dates: start: 20091208, end: 20091227
  2. CEFTRIAXONE [Concomitant]
  3. HALDOL [Concomitant]
  4. DEPAKIN [Concomitant]
  5. SERENASE [Concomitant]
  6. SOLOSA [Concomitant]
  7. MEDROL [Concomitant]
  8. LASIX [Concomitant]
  9. ENTUMIN [Concomitant]
  10. TAVOR [Concomitant]

REACTIONS (1)
  - PULMONARY EMBOLISM [None]
